FAERS Safety Report 9035528 (Version 1)
Quarter: 2013Q1

REPORT INFORMATION
  Report Type: Report from Study
  Country: US (occurrence: US)
  Receive Date: 20130129
  Receipt Date: 20130129
  Transmission Date: 20140127
  Serious: No
  Sender: FDA-Public Use
  Company Number: US-ABBOTT-12P-163-0908837-00

PATIENT
  Sex: Female

DRUGS (4)
  1. HUMIRA 40 MG/0.8 ML PEN [Suspect]
     Indication: MATERNAL EXPOSURE TIMING UNSPECIFIED
     Route: 063
  2. DICLOFENAC POTASSIUM [Suspect]
     Indication: MATERNAL EXPOSURE TIMING UNSPECIFIED
     Route: 063
  3. PERCOCET [Suspect]
     Indication: MATERNAL EXPOSURE TIMING UNSPECIFIED
     Route: 063
  4. PRENATAL VITAMINS [Suspect]
     Indication: MATERNAL EXPOSURE TIMING UNSPECIFIED
     Route: 063

REACTIONS (1)
  - Exposure during breast feeding [Unknown]
